FAERS Safety Report 24217181 (Version 1)
Quarter: 2024Q3

REPORT INFORMATION
  Report Type: Spontaneous
  Country: US (occurrence: US)
  Receive Date: 20240816
  Receipt Date: 20240816
  Transmission Date: 20241017
  Serious: Yes (Hospitalization)
  Sender: MYLAN
  Company Number: US-MYLANLABS-2024M1074955

PATIENT
  Age: 59 Year
  Sex: Male

DRUGS (4)
  1. ATAZANAVIR\RITONAVIR [Suspect]
     Active Substance: ATAZANAVIR\RITONAVIR
     Indication: Antiretroviral therapy
     Dosage: UNK
     Route: 065
  2. ATAZANAVIR\RITONAVIR [Suspect]
     Active Substance: ATAZANAVIR\RITONAVIR
     Indication: HIV infection
  3. Tenofovir/Emtricitabine sandoz [Concomitant]
     Indication: HIV infection
     Dosage: UNK
     Route: 065
  4. Tenofovir/Emtricitabine sandoz [Concomitant]
     Indication: Antiretroviral therapy

REACTIONS (1)
  - Drug ineffective [Unknown]
